FAERS Safety Report 17540374 (Version 5)
Quarter: 2020Q2

REPORT INFORMATION
  Report Type: Spontaneous
  Country: AT (occurrence: AT)
  Receive Date: 20200313
  Receipt Date: 20200423
  Transmission Date: 20200713
  Serious: Yes (Hospitalization, Other)
  Sender: FDA-Public Use
  Company Number: AT-PFIZER INC-2020108168

PATIENT
  Age: 48 Year
  Sex: Male

DRUGS (5)
  1. TRITTICO [Concomitant]
     Active Substance: TRAZODONE HYDROCHLORIDE
     Dosage: 300 MG, DAILY
  2. DOMINAL [PROTHIPENDYL HYDROCHLORIDE] [Concomitant]
     Active Substance: PROTHIPENDYL HYDROCHLORIDE
     Dosage: 160 MG, UNK
  3. TEMESTA (LORAZEPAM) [Suspect]
     Active Substance: LORAZEPAM
     Indication: ANXIETY
     Dosage: 12 MG (8 X 2.5 MG), 1X/DAY IN THE MORNING
     Route: 048
     Dates: start: 2015
  4. TEMESTA (LORAZEPAM) [Suspect]
     Active Substance: LORAZEPAM
     Indication: OBSESSIVE THOUGHTS
  5. TRAMAL [Concomitant]
     Active Substance: TRAMADOL
     Dosage: UNK

REACTIONS (11)
  - Gastrointestinal inflammation [Recovering/Resolving]
  - Palpitations [Not Recovered/Not Resolved]
  - Drug dependence [Unknown]
  - Drug ineffective [Not Recovered/Not Resolved]
  - Fatigue [Not Recovered/Not Resolved]
  - Drug tolerance [Unknown]
  - Product use issue [Unknown]
  - Headache [Not Recovered/Not Resolved]
  - Off label use [Unknown]
  - Cardiovascular disorder [Not Recovered/Not Resolved]
  - Anxiety disorder [Unknown]

NARRATIVE: CASE EVENT DATE: 2015
